FAERS Safety Report 13025378 (Version 1)
Quarter: 2016Q4

REPORT INFORMATION
  Report Type: Spontaneous
  Country: IN (occurrence: IN)
  Receive Date: 20161214
  Receipt Date: 20161214
  Transmission Date: 20170207
  Serious: Yes (Hospitalization, Other)
  Sender: FDA-Public Use
  Company Number: IN-BAUSCH-BL-2016-031216

PATIENT
  Age: 26 Year
  Sex: Male

DRUGS (5)
  1. PHENYTOIN. [Concomitant]
     Active Substance: PHENYTOIN
     Indication: GENERALISED TONIC-CLONIC SEIZURE
     Route: 042
  2. PHENYTOIN. [Concomitant]
     Active Substance: PHENYTOIN
  3. DIAZEPAM. [Concomitant]
     Active Substance: DIAZEPAM
     Indication: GENERALISED TONIC-CLONIC SEIZURE
     Route: 040
  4. GENTAMICIN. [Suspect]
     Active Substance: GENTAMICIN
     Indication: PNEUMONITIS
     Route: 042
  5. AMPICILLIN [Concomitant]
     Active Substance: AMPICILLIN
     Indication: PNEUMONITIS

REACTIONS (1)
  - Bartter^s syndrome [Recovered/Resolved]
